FAERS Safety Report 16037045 (Version 1)
Quarter: 2019Q1

REPORT INFORMATION
  Report Type: Spontaneous
  Country: US (occurrence: US)
  Receive Date: 20190305
  Receipt Date: 20190305
  Transmission Date: 20190418
  Serious: Yes (Other)
  Sender: FDA-Public Use
  Company Number: US-BAYER-2019-041992

PATIENT
  Age: 78 Year
  Sex: Female

DRUGS (2)
  1. CITRACAL PETITES [Suspect]
     Active Substance: CALCIUM CITRATE
     Indication: NUTRITIONAL SUPPLEMENTATION
     Dosage: 2 DF, QD
     Route: 048
  2. BAYER LOW DOSE [Suspect]
     Active Substance: ASPIRIN
     Indication: CARDIOVASCULAR EVENT PROPHYLAXIS
     Dosage: 1 DF, QD
     Route: 048

REACTIONS (2)
  - Product use in unapproved indication [Unknown]
  - Pharyngeal injury [Unknown]
